FAERS Safety Report 20363582 (Version 1)
Quarter: 2022Q1

REPORT INFORMATION
  Report Type: Spontaneous
  Country: US (occurrence: None)
  Receive Date: 20220121
  Receipt Date: 20220121
  Transmission Date: 20220423
  Serious: Yes (unspecified)
  Sender: FDA-Public Use
  Company Number: None

PATIENT
  Age: 30 Year
  Sex: Male
  Weight: 81 kg

DRUGS (2)
  1. ALEVE [Suspect]
     Active Substance: NAPROXEN SODIUM
     Indication: Headache
     Dosage: OTHER QUANTITY : 2 TABLET(S);?
     Route: 048
     Dates: start: 20220118, end: 20220118
  2. Valacyclovir one-a-day gummies [Concomitant]

REACTIONS (13)
  - Throat tightness [None]
  - Ocular hyperaemia [None]
  - Rash [None]
  - Lip swelling [None]
  - Oropharyngeal pain [None]
  - Pharyngeal swelling [None]
  - Mouth ulceration [None]
  - Lip pruritus [None]
  - Glossodynia [None]
  - Blister [None]
  - Tongue ulceration [None]
  - Diarrhoea [None]
  - Lip exfoliation [None]

NARRATIVE: CASE EVENT DATE: 20220118
